FAERS Safety Report 25920209 (Version 2)
Quarter: 2025Q4

REPORT INFORMATION
  Report Type: Spontaneous
  Country: US (occurrence: US)
  Receive Date: 20251014
  Receipt Date: 20251029
  Transmission Date: 20260118
  Serious: No
  Sender: Haleon PLC
  Company Number: US-HALEON-2267854

PATIENT
  Sex: Female

DRUGS (2)
  1. ALLI [Suspect]
     Active Substance: ORLISTAT
     Indication: Weight decreased
     Dates: start: 20250907
  2. ALLI [Suspect]
     Active Substance: ORLISTAT
     Indication: Weight decreased

REACTIONS (3)
  - Constipation [Not Recovered/Not Resolved]
  - Product physical consistency issue [Unknown]
  - Suspected counterfeit product [Unknown]
